FAERS Safety Report 24579993 (Version 1)
Quarter: 2024Q4

REPORT INFORMATION
  Report Type: Spontaneous
  Country: FR (occurrence: FR)
  Receive Date: 20241105
  Receipt Date: 20241105
  Transmission Date: 20250115
  Serious: Yes (Other)
  Sender: RANBAXY
  Company Number: FR-SUN PHARMACEUTICAL INDUSTRIES LTD-2024RR-476798

PATIENT
  Age: 89 Year
  Sex: Female

DRUGS (5)
  1. SERTRALINE [Suspect]
     Active Substance: SERTRALINE HYDROCHLORIDE
     Indication: Anxiety disorder
     Dosage: 100 MILLIGRAM, DAILY
     Route: 048
     Dates: start: 20240515, end: 20240822
  2. SERTRALINE [Suspect]
     Active Substance: SERTRALINE HYDROCHLORIDE
     Indication: Dissociative disorder
  3. OLANZAPINE [Suspect]
     Active Substance: OLANZAPINE
     Indication: Dissociative disorder
     Dosage: 7.5 MILLIGRAM, DAILY
     Route: 048
     Dates: end: 20240822
  4. MIRTAZAPINE [Suspect]
     Active Substance: MIRTAZAPINE
     Indication: Anxiety disorder
     Dosage: 7.5 MILLIGRAM, DAILY
     Route: 048
     Dates: start: 20240701, end: 20240822
  5. LORAZEPAM [Suspect]
     Active Substance: LORAZEPAM
     Indication: Anxiety disorder
     Dosage: 1 MILLIGRAM, TID, + 1 CP IF NEEDED
     Route: 048
     Dates: end: 20240822

REACTIONS (1)
  - Mixed liver injury [Recovering/Resolving]

NARRATIVE: CASE EVENT DATE: 20240701
